FAERS Safety Report 7808506-X (Version None)
Quarter: 2011Q4

REPORT INFORMATION
  Report Type: 
  Country: None (occurrence: None)
  Receive Date: 20111006
  Receipt Date: 20110923
  Transmission Date: 20120403
  Serious: Yes (Death)
  Sender: FDA-Public Use
  Company Number: 1000024359

PATIENT
  Age: 81 Year
  Sex: Female

DRUGS (13)
  1. STABLON (TIANEPTINE SODIUM) (TIANEPTINE SODIUM) [Concomitant]
  2. EXELON (RIVASTIGMINE) (RIVASTIGMINE) [Concomitant]
  3. ESCITALOPRAM [Suspect]
  4. DIGOXIN [Suspect]
  5. MIANSERINE (MIANSERIN HYDROCHLORIDE) (MIANSERIN HYDROCHLORIDE) [Concomitant]
  6. CARDENSIEL (BISOPROLOL FUMARATE) (BISOPROLOL FUMARATE) [Concomitant]
  7. MONOTILDIEM (DILTIAZEM HYDROCHLORIDE) (DILTIAZEM) [Concomitant]
  8. MEPRONIZINE (CLINDORM) (CLINDORM) [Concomitant]
  9. LIPANOR (CIPROFIBRATE) [Suspect]
  10. MODOPAR (MADOPAR) (MADOPAR) [Concomitant]
  11. LIORESAL [Concomitant]
  12. COUMADIN [Suspect]
     Indication: ARRHYTHMIA
     Dosage: 0.5 DF IN MORNING AND 0.25 DF ALTERNATELY, ORAL
     Route: 048
  13. DIFFU K (POTASSIUM CHLORIDE) (POTASSIUM CHLORIDE) [Concomitant]

REACTIONS (4)
  - CEREBELLAR HAEMATOMA [None]
  - DEPRESSED LEVEL OF CONSCIOUSNESS [None]
  - HEMIPLEGIA [None]
  - HYPERTENSION [None]
